FAERS Safety Report 15281307 (Version 1)
Quarter: 2018Q3

REPORT INFORMATION
  Report Type: Spontaneous
  Country: US (occurrence: US)
  Receive Date: 20180731
  Receipt Date: 20180731
  Transmission Date: 20181010
  Serious: Yes (Disabling)
  Sender: FDA-Public Use
  Company Number: None

PATIENT
  Age: 50 Year
  Sex: Female
  Weight: 81 kg

DRUGS (1)
  1. OXYCODONE AND ACETAMINOPHEN [Suspect]
     Active Substance: ACETAMINOPHEN\OXYCODONE HYDROCHLORIDE
     Indication: MASTECTOMY
     Dosage: ?          QUANTITY:1 TABLET(S);?
     Route: 048
     Dates: start: 20180730, end: 20180731

REACTIONS (8)
  - Dysphagia [None]
  - Drug ineffective [None]
  - Headache [None]
  - Nausea [None]
  - Vomiting [None]
  - Product physical consistency issue [None]
  - Product colour issue [None]
  - Foreign body in respiratory tract [None]

NARRATIVE: CASE EVENT DATE: 20180730
